FAERS Safety Report 10229330 (Version 1)
Quarter: 2014Q2

REPORT INFORMATION
  Report Type: Spontaneous
  Country: FR (occurrence: FR)
  Receive Date: 20140611
  Receipt Date: 20140611
  Transmission Date: 20141212
  Serious: Yes (Life-Threatening, Hospitalization)
  Sender: FDA-Public Use
  Company Number: FR-ROCHE-1415022

PATIENT
  Age: 67 Year
  Sex: Female

DRUGS (11)
  1. MABTHERA [Suspect]
     Indication: B-CELL LYMPHOMA
     Dosage: IN COMBINATION WITH CHOP
     Route: 065
     Dates: start: 20130105, end: 20131212
  2. MABTHERA [Suspect]
     Dosage: IN COMBINATION WITH DHAP
     Route: 042
     Dates: start: 20140127
  3. CISPLATINE MYLAN [Suspect]
     Indication: B-CELL LYMPHOMA
     Dosage: SINGLE ADMINISTRATION
     Route: 042
     Dates: start: 20140128
  4. CYTARABINE SANDOZ [Suspect]
     Indication: B-CELL LYMPHOMA
     Dosage: SINGLE ADMINISTRATION
     Route: 042
     Dates: start: 20140129
  5. LODOZ [Concomitant]
     Dosage: 5MG/6.25MG
     Route: 048
  6. TAHOR [Concomitant]
     Route: 048
  7. EUPANTOL [Concomitant]
     Route: 048
  8. VALACICLOVIR [Concomitant]
  9. ATARAX [Concomitant]
     Dosage: IF ANXIETY
     Route: 065
  10. PRIMPERAN [Concomitant]
     Dosage: AT REQUEST
     Route: 065
  11. ZOPHREN [Concomitant]
     Dosage: AT REQUEST
     Route: 065

REACTIONS (1)
  - Renal failure acute [Not Recovered/Not Resolved]
